FAERS Safety Report 15014711 (Version 1)
Quarter: 2018Q2

REPORT INFORMATION
  Report Type: Spontaneous
  Country: DE (occurrence: DE)
  Receive Date: 20180615
  Receipt Date: 20180615
  Transmission Date: 20180711
  Serious: Yes (Hospitalization)
  Sender: FDA-Public Use
  Company Number: DE-TEVA-2018-DE-907626

PATIENT
  Age: 48 Year
  Sex: Male
  Weight: 120 kg

DRUGS (2)
  1. OXYCODONE HYDROCHLORIDE. [Suspect]
     Active Substance: OXYCODONE HYDROCHLORIDE
     Dosage: NK MG, 1-1-1-0
     Route: 065
  2. CITALOPRAM [Suspect]
     Active Substance: CITALOPRAM HYDROBROMIDE
     Dosage: 1-0-0-0
     Route: 065

REACTIONS (3)
  - Drug prescribing error [Unknown]
  - Hyperhidrosis [Unknown]
  - Tremor [Unknown]
